FAERS Safety Report 19223634 (Version 1)
Quarter: 2021Q2

REPORT INFORMATION
  Report Type: Spontaneous
  Country: US (occurrence: US)
  Receive Date: 20210505
  Receipt Date: 20210505
  Transmission Date: 20210717
  Serious: Yes (Death)
  Sender: FDA-Public Use
  Company Number: US-CUMBERLAND-2021-US-000014

PATIENT
  Age: 46 Year
  Sex: Male

DRUGS (6)
  1. GENTAMICIN. [Concomitant]
     Active Substance: GENTAMICIN
  2. AMPICILLIN [Concomitant]
     Active Substance: AMPICILLIN
  3. ACYCLOVIR. [Concomitant]
     Active Substance: ACYCLOVIR
  4. VANCOMYCIN [Concomitant]
     Active Substance: VANCOMYCIN
  5. CEFTRIAXONE. [Concomitant]
     Active Substance: CEFTRIAXONE
  6. REDITREX [Suspect]
     Active Substance: METHOTREXATE

REACTIONS (5)
  - Hydrocephalus [Fatal]
  - Listeriosis [Fatal]
  - Cerebral haemorrhage [Fatal]
  - Leukocytosis [Unknown]
  - Encephalitis brain stem [Fatal]
